FAERS Safety Report 13351210 (Version 1)
Quarter: 2017Q1

REPORT INFORMATION
  Report Type: Spontaneous
  Country: FR (occurrence: FR)
  Receive Date: 20170320
  Receipt Date: 20170320
  Transmission Date: 20170429
  Serious: Yes (Hospitalization)
  Sender: FDA-Public Use
  Company Number: FR-JNJFOC-20170314153

PATIENT
  Age: 88 Year
  Sex: Male

DRUGS (2)
  1. RISPERDAL [Suspect]
     Active Substance: RISPERIDONE
     Indication: ABNORMAL BEHAVIOUR
     Route: 048
     Dates: start: 20170126, end: 20170216
  2. RISPERDAL [Suspect]
     Active Substance: RISPERIDONE
     Indication: ABNORMAL BEHAVIOUR
     Dosage: 0.5 MG IN THE MORNING AND 1 MG IN THE EVENING
     Route: 048
     Dates: start: 20170216, end: 20170221

REACTIONS (7)
  - Bundle branch block left [Recovered/Resolved]
  - Supraventricular extrasystoles [Recovered/Resolved]
  - Agitation [Recovered/Resolved]
  - Sinus tachycardia [Recovered/Resolved]
  - Headache [Recovered/Resolved]
  - Confusional state [Recovered/Resolved]
  - Insomnia [Recovered/Resolved]

NARRATIVE: CASE EVENT DATE: 20170221
